FAERS Safety Report 12992411 (Version 2)
Quarter: 2017Q1

REPORT INFORMATION
  Report Type: Spontaneous
  Country: US (occurrence: US)
  Receive Date: 20161202
  Receipt Date: 20170329
  Transmission Date: 20170428
  Serious: No
  Sender: FDA-Public Use
  Company Number: US-ELI_LILLY_AND_COMPANY-US201611004342

PATIENT
  Sex: Female
  Weight: 72.56 kg

DRUGS (3)
  1. CYMBALTA [Suspect]
     Active Substance: DULOXETINE HYDROCHLORIDE
     Indication: FIBROMYALGIA
     Dosage: 60 MG, QD
     Route: 048
     Dates: start: 2006
  2. LEVOTHYROXIN [Concomitant]
     Active Substance: LEVOTHYROXINE
     Indication: HYPOTHYROIDISM
     Dosage: UNK, UNKNOWN
  3. CYMBALTA [Suspect]
     Active Substance: DULOXETINE HYDROCHLORIDE
     Indication: CONNECTIVE TISSUE DISORDER
     Dosage: 60 MG, QD
     Route: 065
     Dates: start: 2016

REACTIONS (13)
  - Mental status changes [Recovering/Resolving]
  - Tremor [Recovering/Resolving]
  - Intentional product misuse [Unknown]
  - Drug withdrawal syndrome [Recovering/Resolving]
  - Feeling hot [Recovering/Resolving]
  - Nausea [Recovering/Resolving]
  - Wrong technique in product usage process [Not Recovered/Not Resolved]
  - Hyperhidrosis [Recovering/Resolving]
  - Anxiety [Recovering/Resolving]
  - Chills [Recovering/Resolving]
  - Vertigo [Recovering/Resolving]
  - Cerebral disorder [Recovering/Resolving]
  - Drug dose omission [Recovering/Resolving]

NARRATIVE: CASE EVENT DATE: 2016
